FAERS Safety Report 7416181-1 (Version None)
Quarter: 2011Q2

REPORT INFORMATION
  Report Type: 
  Country: None (occurrence: None)
  Receive Date: 20110414
  Receipt Date: 20110411
  Transmission Date: 20111010
  Serious: Yes (Hospitalization, Other)
  Sender: FDA-Public Use
  Company Number: CHPA2011US04846

PATIENT
  Age: 53 Year
  Sex: Female
  Weight: 97.506 kg

DRUGS (1)
  1. GAS-X CHEWABLE TABLETS CHERRY CREME [Suspect]
     Indication: DYSPEPSIA
     Dosage: 3 DF, ONCE/SINGLE
     Route: 048
     Dates: start: 20110401, end: 20110401

REACTIONS (5)
  - ABDOMINAL PAIN UPPER [None]
  - OFF LABEL USE [None]
  - CHOLELITHIASIS [None]
  - CHOLECYSTECTOMY [None]
  - VOMITING [None]
